FAERS Safety Report 6519026-7 (Version None)
Quarter: 2009Q4

REPORT INFORMATION
  Report Type: 
  Country: None (occurrence: None)
  Receive Date: 20091228
  Receipt Date: 20091218
  Transmission Date: 20100525
  Serious: Yes (Other)
  Sender: FDA-Public Use
  Company Number: US-MYLANLABS-2009S1021632

PATIENT
  Age: 62 Year
  Sex: Female

DRUGS (10)
  1. FENTANYL CITRATE [Suspect]
     Indication: BACK PAIN
     Dosage: CHANGED PATCHES Q3D
     Route: 062
     Dates: end: 20091213
  2. TRAZODONE HCL [Concomitant]
  3. PREVALITE /01364901/ [Concomitant]
  4. METHYLTESTERONE [Concomitant]
  5. ROPINIROLE [Concomitant]
  6. METHYLIN [Concomitant]
  7. NYSTOP [Concomitant]
  8. LASIX [Concomitant]
  9. CYMBALTA [Concomitant]
  10. LYRICA [Concomitant]

REACTIONS (3)
  - HALLUCINATION [None]
  - OVERDOSE [None]
  - UNRESPONSIVE TO STIMULI [None]
